FAERS Safety Report 8113806-2 (Version None)
Quarter: 2012Q1

REPORT INFORMATION
  Report Type: 
  Country: None (occurrence: None)
  Receive Date: 20120203
  Receipt Date: 20070731
  Transmission Date: 20120608
  Serious: Yes (Death)
  Sender: FDA-Public Use
  Company Number: NL-ABBOTT-12P-114-0900959-00

PATIENT
  Sex: Male
  Weight: 92 kg

DRUGS (5)
  1. TEVETEN [Suspect]
     Dates: start: 20050428
  2. TEVETEN [Suspect]
     Dates: start: 20050715
  3. METOPROLOL [Concomitant]
     Indication: PRODUCT USED FOR UNKNOWN INDICATION
  4. TEVETEN [Suspect]
     Indication: ESSENTIAL HYPERTENSION
     Dates: start: 20050414
  5. HYDROCHLOROTHIAZIDE [Concomitant]
     Indication: OEDEMA
     Dosage: DAILY DOSE: 25MG

REACTIONS (1)
  - FALL [None]
